FAERS Safety Report 10715656 (Version 5)
Quarter: 2015Q1

REPORT INFORMATION
  Report Type: Spontaneous
  Country: DE (occurrence: DE)
  Receive Date: 20150116
  Receipt Date: 20150330
  Transmission Date: 20150721
  Serious: Yes (Hospitalization, Other)
  Sender: FDA-Public Use
  Company Number: PHHY2015DE002677

PATIENT
  Age: 37 Year
  Sex: Female

DRUGS (11)
  1. XARELTO [Suspect]
     Active Substance: RIVAROXABAN
     Indication: PRODUCT USED FOR UNKNOWN INDICATION
     Dosage: 15 MG, QD
     Route: 065
     Dates: start: 20130206, end: 20130214
  2. BROMELAIN-POS [Concomitant]
     Active Substance: BROMELAINS
     Indication: PRODUCT USED FOR UNKNOWN INDICATION
     Dosage: UNK
     Route: 065
     Dates: start: 20130206, end: 20130224
  3. MONO-EMBOLEX [Concomitant]
     Active Substance: CERTOPARIN SODIUM
     Indication: PRODUCT USED FOR UNKNOWN INDICATION
     Route: 065
  4. VOLTAREN RESINAT [Suspect]
     Active Substance: DICLOFENAC
     Indication: PAIN
     Dosage: 75 MG, BID
     Route: 048
     Dates: end: 2013
  5. VOLTAREN RESINAT [Suspect]
     Active Substance: DICLOFENAC
     Dosage: 75 MG, TID
     Route: 048
     Dates: start: 20130205, end: 20130224
  6. NOVAMINSULFON [Concomitant]
     Active Substance: METAMIZOLE
     Indication: PRODUCT USED FOR UNKNOWN INDICATION
     Dosage: UNK
     Route: 065
     Dates: start: 20130205, end: 20130224
  7. IBUPROFEN. [Concomitant]
     Active Substance: IBUPROFEN
     Indication: PRODUCT USED FOR UNKNOWN INDICATION
     Route: 065
  8. NOVALGIN [Concomitant]
     Active Substance: METAMIZOLE SODIUM
     Indication: PRODUCT USED FOR UNKNOWN INDICATION
     Dosage: 1 G, QID
     Route: 065
  9. LYRICA [Concomitant]
     Active Substance: PREGABALIN
     Indication: ANXIETY DISORDER
     Dosage: 50 MG, ONCE IN THE EVENING
     Route: 065
     Dates: start: 201204, end: 20130224
  10. DICLOFENAC [Concomitant]
     Active Substance: DICLOFENAC
     Indication: PRODUCT USED FOR UNKNOWN INDICATION
     Route: 065
  11. PANTOZOL [Concomitant]
     Active Substance: PANTOPRAZOLE SODIUM
     Indication: PRODUCT USED FOR UNKNOWN INDICATION
     Dosage: 40 MG, QD
     Route: 042
     Dates: start: 20130205, end: 20130224

REACTIONS (44)
  - Abdominal tenderness [Unknown]
  - Pneumonia [Unknown]
  - Pancreatitis [Unknown]
  - Oedema [Unknown]
  - Discomfort [Unknown]
  - Pulmonary oedema [Unknown]
  - Neck pain [Unknown]
  - Cholangitis [Unknown]
  - Respiratory failure [Not Recovered/Not Resolved]
  - Lumbar radiculopathy [Unknown]
  - Abdominal pain [Unknown]
  - Gallbladder pain [Unknown]
  - Dyspnoea exertional [Unknown]
  - Sepsis [Unknown]
  - Spinal pain [Unknown]
  - Epstein-Barr virus test [Recovered/Resolved]
  - Vomiting [Unknown]
  - Decreased appetite [Unknown]
  - Colitis [Unknown]
  - Drug-induced liver injury [Not Recovered/Not Resolved]
  - Ascites [Unknown]
  - Coma [Unknown]
  - Pancreatitis acute [Unknown]
  - Faecaloma [Unknown]
  - Asthenia [Unknown]
  - Abdominal discomfort [Unknown]
  - Fatigue [Unknown]
  - Chondromalacia [Unknown]
  - Hypokalaemia [Unknown]
  - Arthralgia [Unknown]
  - Mean cell volume increased [Recovered/Resolved]
  - Platelet count decreased [Recovered/Resolved]
  - Cholecystitis [Unknown]
  - Hepatic failure [Not Recovered/Not Resolved]
  - Back pain [Unknown]
  - Haematocrit decreased [Recovered/Resolved]
  - Folate deficiency [Unknown]
  - Interstitial lung disease [Unknown]
  - Red blood cell count decreased [Recovered/Resolved]
  - Haemoglobin decreased [Recovered/Resolved]
  - Mean cell haemoglobin concentration decreased [Recovered/Resolved]
  - Nausea [Unknown]
  - Jaundice [Unknown]
  - Asthma [Unknown]

NARRATIVE: CASE EVENT DATE: 201302
